FAERS Safety Report 22914190 (Version 3)
Quarter: 2024Q2

REPORT INFORMATION
  Report Type: Spontaneous
  Country: US (occurrence: US)
  Receive Date: 20230906
  Receipt Date: 20240410
  Transmission Date: 20240716
  Serious: No
  Sender: FDA-Public Use
  Company Number: US-VIIV HEALTHCARE LIMITED-US2023AMR120327

PATIENT
  Age: 47 Year
  Sex: Male
  Weight: 104 kg

DRUGS (10)
  1. CABENUVA [Suspect]
     Active Substance: CABOTEGRAVIR\RILPIVIRINE
     Indication: HIV infection
     Dosage: UNK UNK, Q2M (600/900 MG)
     Route: 030
     Dates: start: 20221116
  2. CABENUVA [Suspect]
     Active Substance: CABOTEGRAVIR\RILPIVIRINE
  3. CABENUVA [Suspect]
     Active Substance: CABOTEGRAVIR\RILPIVIRINE
  4. CABENUVA [Suspect]
     Active Substance: CABOTEGRAVIR\RILPIVIRINE
     Indication: HIV infection
     Dosage: UNK UNK, Q2M (600/900 MG)
     Route: 030
  5. CABENUVA [Suspect]
     Active Substance: CABOTEGRAVIR\RILPIVIRINE
     Indication: HIV infection
     Dosage: UNK UNK, Q2M (600/900 MG)
     Route: 030
  6. CABENUVA [Suspect]
     Active Substance: CABOTEGRAVIR\RILPIVIRINE
     Indication: HIV infection
     Dosage: UNK UNK, Q2M (600/900 MG)
     Route: 030
  7. CABENUVA [Suspect]
     Active Substance: CABOTEGRAVIR\RILPIVIRINE
     Indication: HIV infection
     Dosage: UNK UNK, Q2M (600/900 MG)
     Route: 030
     Dates: end: 20230823
  8. CABENUVA [Suspect]
     Active Substance: CABOTEGRAVIR\RILPIVIRINE
     Indication: HIV infection
     Dosage: UNK, Q2M
     Route: 030
     Dates: end: 20230823
  9. BIKTARVY [Concomitant]
     Active Substance: BICTEGRAVIR SODIUM\EMTRICITABINE\TENOFOVIR ALAFENAMIDE FUMARATE
     Indication: HIV infection
     Dosage: UNK
  10. LISINOPRIL [Concomitant]
     Active Substance: LISINOPRIL
     Indication: Essential hypertension
     Dosage: UNK

REACTIONS (6)
  - Blood HIV RNA increased [Recovered/Resolved]
  - Viral mutation identified [Recovered/Resolved]
  - Pathogen resistance [Recovered/Resolved]
  - Virologic failure [Recovered/Resolved]
  - Wrong technique in device usage process [Unknown]
  - Treatment failure [Unknown]

NARRATIVE: CASE EVENT DATE: 20230509
